FAERS Safety Report 5092196-6 (Version None)
Quarter: 2006Q3

REPORT INFORMATION
  Report Type: 
  Country: None (occurrence: None)
  Receive Date: 20060824
  Receipt Date: 20060811
  Transmission Date: 20061208
  Serious: Yes (Hospitalization)
  Sender: FDA-Public Use
  Company Number: 2006097661

PATIENT
  Age: 39 Year
  Sex: Female
  Weight: 89.3586 kg

DRUGS (3)
  1. BENADRYL [Suspect]
     Indication: INSOMNIA
     Dosage: ORAL
     Route: 048
  2. ZANTAC [Suspect]
     Indication: DYSPEPSIA
     Dosage: ORAL
     Route: 048
  3. PRENATAL VITAMINS (ASCORBIC ACID, BIOTIN, MINERALS NOS, NICOTINIC ACID [Concomitant]

REACTIONS (2)
  - DRUG EXPOSURE DURING PREGNANCY [None]
  - HEART RATE DECREASED [None]
